FAERS Safety Report 14819796 (Version 1)
Quarter: 2018Q2

REPORT INFORMATION
  Report Type: Spontaneous
  Country: US (occurrence: US)
  Receive Date: 20180427
  Receipt Date: 20180427
  Transmission Date: 20180711
  Serious: Yes (Hospitalization)
  Sender: FDA-Public Use
  Company Number: US-JNJFOC-20180427907

PATIENT
  Sex: Male
  Weight: 131.54 kg

DRUGS (6)
  1. SUBOXONE [Concomitant]
     Active Substance: BUPRENORPHINE HYDROCHLORIDE\NALOXONE HYDROCHLORIDE
     Dosage: FOR 4 MONTHS
     Route: 065
  2. DURAGESIC [Suspect]
     Active Substance: FENTANYL
     Indication: PAIN
     Route: 062
     Dates: start: 2009, end: 2009
  3. FENTANYL CITRATE. [Concomitant]
     Active Substance: FENTANYL CITRATE
     Dosage: FOR 4 MONTHS
     Route: 065
  4. DURAGESIC [Suspect]
     Active Substance: FENTANYL
     Indication: PAIN
     Dosage: FOR 4 MONTHS
     Route: 062
     Dates: start: 2007, end: 2007
  5. DURAGESIC [Suspect]
     Active Substance: FENTANYL
     Indication: PAIN
     Route: 062
     Dates: start: 201703, end: 2017
  6. ADDERALL [Concomitant]
     Active Substance: AMPHETAMINE ASPARTATE\AMPHETAMINE SULFATE\DEXTROAMPHETAMINE SACCHARATE\DEXTROAMPHETAMINE SULFATE
     Dosage: FOR 4 MONTHS
     Route: 065

REACTIONS (7)
  - Muscle injury [Unknown]
  - Skeletal injury [Unknown]
  - Sciatica [Unknown]
  - Metal poisoning [Unknown]
  - Blood pressure increased [Unknown]
  - Muscle atrophy [Unknown]
  - Drug tolerance [Unknown]

NARRATIVE: CASE EVENT DATE: 2007
